FAERS Safety Report 15294935 (Version 1)
Quarter: 2018Q3

REPORT INFORMATION
  Report Type: Spontaneous
  Country: US (occurrence: US)
  Receive Date: 20180807
  Receipt Date: 20180807
  Transmission Date: 20181010
  Serious: Yes (Other)
  Sender: FDA-Public Use
  Company Number: None

PATIENT
  Age: 62 Year
  Sex: Male
  Weight: 117.9 kg

DRUGS (1)
  1. SOFOSBUVIR?VELPATASVIR [Suspect]
     Active Substance: SOFOSBUVIR\VELPATASVIR
     Indication: HEPATITIS C
     Route: 048
     Dates: start: 20180516, end: 20180723

REACTIONS (5)
  - Blister [None]
  - Rash [None]
  - Purulent discharge [None]
  - Wound [None]
  - Musculoskeletal disorder [None]

NARRATIVE: CASE EVENT DATE: 20180723
